FAERS Safety Report 8784330 (Version 3)
Quarter: 2018Q3

REPORT INFORMATION
  Report Type: Spontaneous
  Country: US (occurrence: US)
  Receive Date: 20120913
  Receipt Date: 20180809
  Transmission Date: 20181010
  Serious: Yes (Death, Hospitalization, Congenital Anomaly, Other)
  Sender: FDA-Public Use
  Company Number: US-009507513-1009USA03227B1

PATIENT

DRUGS (3)
  1. EPZICOM [Suspect]
     Active Substance: ABACAVIR SULFATE\LAMIVUDINE
     Indication: ANTIRETROVIRAL THERAPY
     Dosage: 1 DF, QD
     Route: 064
  2. INTELENCE [Suspect]
     Active Substance: ETRAVIRINE
     Indication: ANTIRETROVIRAL THERAPY
     Dosage: 400 MG, QD
     Route: 064
  3. ISENTRESS [Suspect]
     Active Substance: RALTEGRAVIR POTASSIUM
     Indication: ANTIRETROVIRAL THERAPY
     Dosage: 800 MG, QD
     Route: 064

REACTIONS (3)
  - Foetal exposure during pregnancy [Unknown]
  - Foetal death [Fatal]
  - Pyelocaliectasis [Unknown]

NARRATIVE: CASE EVENT DATE: 20100806
